FAERS Safety Report 11226620 (Version 3)
Quarter: 2017Q1

REPORT INFORMATION
  Report Type: Spontaneous
  Country: US (occurrence: US)
  Receive Date: 20150630
  Receipt Date: 20170208
  Transmission Date: 20170428
  Serious: Yes (Other)
  Sender: FDA-Public Use
  Company Number: US-SA-2015SA043614

PATIENT
  Age: 54 Year
  Sex: Female

DRUGS (1)
  1. AUBAGIO [Suspect]
     Active Substance: TERIFLUNOMIDE
     Indication: CEREBROVASCULAR ACCIDENT
     Route: 048
     Dates: start: 20141122

REACTIONS (3)
  - Off label use [Unknown]
  - Pruritus [Unknown]
  - Abasia [Unknown]

NARRATIVE: CASE EVENT DATE: 20150331
